FAERS Safety Report 8795438 (Version 1)
Quarter: 2012Q4

REPORT INFORMATION
  Report Type: 
  Country: US (occurrence: US)
  Receive Date: 20120917
  Receipt Date: 20120917
  Transmission Date: 20130627
  Serious: Yes (Other)
  Sender: FDA-Public Use
  Company Number: US-009507513-1209USA003485

PATIENT

DRUGS (7)
  1. ISENTRESS [Suspect]
     Dosage: 400 mg, bid
     Route: 048
  2. CELSENTRI [Suspect]
     Dosage: 600 mg, bid
  3. MICOSTATIN [Concomitant]
  4. VENTOLIN (ALBUTEROL SULFATE) [Concomitant]
     Route: 055
  5. ETRAVIRINE [Concomitant]
     Dosage: 125 mg, bid
  6. CEFUROXIME [Concomitant]
     Dosage: 250 mg, bid
  7. SULFAMETHOXAZOLE (+) TRIMETHOPRIM [Concomitant]
     Dosage: 500 mg, three times a week
     Route: 048

REACTIONS (3)
  - Gastrointestinal disorder [Unknown]
  - Off label use [Unknown]
  - Hallucination [Unknown]
